FAERS Safety Report 15482732 (Version 1)
Quarter: 2018Q4

REPORT INFORMATION
  Report Type: Spontaneous
  Country: GB (occurrence: GB)
  Receive Date: 20181010
  Receipt Date: 20181010
  Transmission Date: 20190205
  Serious: Yes (Other)
  Sender: FDA-Public Use
  Company Number: GB-TEVA-2018-GB-962606

PATIENT
  Age: 62 Year
  Sex: Female
  Weight: 55 kg

DRUGS (10)
  1. DULOXETINE. [Suspect]
     Active Substance: DULOXETINE
     Route: 065
     Dates: start: 20180813
  2. CIPROFLOXACIN. [Concomitant]
     Active Substance: CIPROFLOXACIN
     Dosage: 4 GTT DAILY; IN LEFT EAR
     Route: 001
     Dates: start: 20180628, end: 20180726
  3. KLIOVANCE [Concomitant]
     Active Substance: ESTRADIOL\NORETHINDRONE ACETATE
     Dosage: 1 DOSAGE FORMS DAILY;
     Dates: start: 20170929
  4. PREDNISOLONE. [Concomitant]
     Active Substance: PREDNISOLONE
     Dosage: 2 DOSAGE FORMS DAILY;
     Dates: start: 20180515
  5. NEOMYCIN SULFATE. [Concomitant]
     Active Substance: NEOMYCIN SULFATE
     Dosage: APPLY AS DIRECTED
     Dates: start: 20170929
  6. THEICAL-D3 [Concomitant]
     Dosage: 1 DOSAGE FORMS DAILY; CHEW
     Dates: start: 20170913
  7. AMITRIPTYLINE HYDROCHLORIDE. [Concomitant]
     Active Substance: AMITRIPTYLINE HYDROCHLORIDE
     Dosage: 1 DOSAGE FORMS DAILY; AT NIGHT
     Dates: start: 20160823
  8. LANSOPRAZOLE. [Concomitant]
     Active Substance: LANSOPRAZOLE
     Dosage: 1 DOSAGE FORMS DAILY;
     Dates: start: 20180606
  9. HYLO-TEAR [Concomitant]
     Dosage: USE AS DIRECTED
     Dates: start: 20180515
  10. AZATHIOPRINE. [Concomitant]
     Active Substance: AZATHIOPRINE
     Dosage: 2 DOSAGE FORMS DAILY;
     Dates: start: 20180523

REACTIONS (2)
  - Poor quality sleep [Recovered/Resolved]
  - Epistaxis [Recovered/Resolved]

NARRATIVE: CASE EVENT DATE: 20180813
